FAERS Safety Report 7465392-8 (Version None)
Quarter: 2011Q2

REPORT INFORMATION
  Report Type: 
  Country: None (occurrence: None)
  Receive Date: 20110509
  Receipt Date: 20110502
  Transmission Date: 20111010
  Serious: Yes (Other)
  Sender: FDA-Public Use
  Company Number: US-BAYER-2011-011020

PATIENT
  Sex: Male

DRUGS (2)
  1. NEXAVAR [Suspect]
     Dosage: 200 MG, BID
  2. LACTULOSE [Concomitant]

REACTIONS (6)
  - CONTUSION [None]
  - HAEMORRHAGE [None]
  - HEADACHE [None]
  - DYSPNOEA [None]
  - DIARRHOEA [None]
  - FATIGUE [None]
